FAERS Safety Report 9261645 (Version 2)
Quarter: 2013Q2

REPORT INFORMATION
  Report Type: Report from Study
  Country: US (occurrence: US)
  Receive Date: 20130429
  Receipt Date: 20130507
  Transmission Date: 20140414
  Serious: Yes (Death, Hospitalization)
  Sender: FDA-Public Use
  Company Number: US-ACTELION-A-US2013-82417

PATIENT
  Age: 52 Year
  Sex: Male

DRUGS (2)
  1. VELETRI [Suspect]
     Indication: PULMONARY ARTERIAL HYPERTENSION
     Dosage: 18 NG/KG, UNK
     Route: 042
     Dates: start: 20130115
  2. COUMADIN [Concomitant]

REACTIONS (2)
  - Death [Fatal]
  - Road traffic accident [Unknown]
